FAERS Safety Report 15724562 (Version 3)
Quarter: 2018Q4

REPORT INFORMATION
  Report Type: Report from Study
  Country: US (occurrence: CA)
  Receive Date: 20181214
  Receipt Date: 20181227
  Transmission Date: 20190205
  Serious: Yes (Life-Threatening, Hospitalization)
  Sender: FDA-Public Use
  Company Number: CA-TESAROUBC-2018-TSO2442-CA

PATIENT
  Age: 60 Year
  Sex: Female
  Weight: 61 kg

DRUGS (28)
  1. MCAL [Concomitant]
     Indication: SUPPLEMENTATION THERAPY
     Dosage: 500MG-800 IU
     Route: 048
     Dates: start: 20180216
  2. MAGIC MOUTHWASH [Concomitant]
     Active Substance: DIPHENHYDRAMINE HYDROCHLORIDE\LIDOCAINE HYDROCHLORIDE\NYSTATIN
     Indication: STOMATITIS
     Dosage: 10 ML, QID PRN
     Route: 048
     Dates: start: 20180111, end: 20180218
  3. MAGIC MOUTHWASH [Concomitant]
     Active Substance: DIPHENHYDRAMINE HYDROCHLORIDE\LIDOCAINE HYDROCHLORIDE\NYSTATIN
     Indication: SWOLLEN TONGUE
     Dosage: 10 ML, QID PRN
     Route: 048
     Dates: start: 20180824
  4. FILGRASTIM [Concomitant]
     Active Substance: FILGRASTIM
     Indication: NEUTROPENIA
     Dosage: 300 ?G, QD
     Route: 058
     Dates: start: 20181209
  5. NIRAPARIB [Suspect]
     Active Substance: NIRAPARIB
     Indication: OVARIAN CANCER
     Dosage: 300 MG, UNK
     Route: 048
     Dates: start: 20180227, end: 20180330
  6. PROCHLORAZINE [Concomitant]
     Indication: PROPHYLAXIS OF NAUSEA AND VOMITING
     Dosage: 10 MG, Q4-6H PRN
     Route: 048
     Dates: start: 20180120, end: 20180301
  7. PROCHLORAZINE [Concomitant]
     Indication: NAUSEA
     Dosage: 10 MG, Q4-6 HR PRN
     Route: 048
     Dates: start: 20180301
  8. BENADRYL [Concomitant]
     Active Substance: DIPHENHYDRAMINE HYDROCHLORIDE
     Indication: SKIN REACTION
     Dosage: 50 MG, ONCE
     Route: 048
     Dates: start: 20181010, end: 20181010
  9. LAX-A-DAY [Concomitant]
     Indication: PROPHYLAXIS
     Dosage: 17 G, QD
     Route: 048
     Dates: start: 20181130
  10. TEVA TELMISARTAN [Concomitant]
     Active Substance: TELMISARTAN
     Indication: HYPERTENSION
     Dosage: 80 MG, QD
     Route: 048
     Dates: start: 20180216
  11. ATIVAN [Concomitant]
     Active Substance: LORAZEPAM
     Indication: ANXIETY
     Dosage: 1 MG, QHS
     Dates: start: 20180207
  12. BENADRYL [Concomitant]
     Active Substance: DIPHENHYDRAMINE HYDROCHLORIDE
     Indication: FLUSHING
  13. PANTOLOC [Concomitant]
     Active Substance: PANTOPRAZOLE SODIUM
     Indication: GASTROOESOPHAGEAL REFLUX DISEASE
     Dosage: 40 MG, QD
     Route: 048
     Dates: start: 20180522, end: 20180630
  14. PANTOLOC [Concomitant]
     Active Substance: PANTOPRAZOLE SODIUM
     Indication: PROPHYLAXIS
     Dosage: 40 MG, QD
     Route: 048
     Dates: start: 20180731
  15. PREDNISONE. [Concomitant]
     Active Substance: PREDNISONE
     Indication: IODINE ALLERGY
     Dosage: 50 MG, 13 HRS 7 HR + 1 HR BEFORE PROCEDURE
     Dates: start: 20180219
  16. NIRAPARIB [Suspect]
     Active Substance: NIRAPARIB
     Dosage: 200 MG, UNK
     Route: 048
     Dates: start: 20180403, end: 20181206
  17. METFORMIN [Concomitant]
     Active Substance: METFORMIN HYDROCHLORIDE
     Indication: TYPE 2 DIABETES MELLITUS
     Dosage: 500 MG, QD
     Dates: start: 20180117
  18. BENADRYL [Concomitant]
     Active Substance: DIPHENHYDRAMINE HYDROCHLORIDE
     Indication: IODINE ALLERGY
     Dosage: 50 MG, 1HR BEFORE
     Route: 048
     Dates: start: 20180220
  19. MAGNESIUM [Concomitant]
     Active Substance: MAGNESIUM
     Indication: SUPPLEMENTATION THERAPY
     Dosage: 250 MG, BID
     Route: 048
     Dates: start: 20180129
  20. MAGIC MOUTHWASH [Concomitant]
     Active Substance: DIPHENHYDRAMINE HYDROCHLORIDE\LIDOCAINE HYDROCHLORIDE\NYSTATIN
     Indication: ORAL PAIN
  21. ZOFRAN [Concomitant]
     Active Substance: ONDANSETRON HYDROCHLORIDE
     Indication: NAUSEA
     Dosage: 4 MG, TID
     Route: 048
     Dates: start: 20181130
  22. SENNOSIDE [Concomitant]
     Active Substance: SENNOSIDES
     Indication: CONSTIPATION
     Dosage: 8.6 MG, QHS PRN
     Route: 048
     Dates: start: 20180109
  23. COLACE [Concomitant]
     Active Substance: DOCUSATE SODIUM
     Indication: PROPHYLAXIS
     Dosage: 100 MG, BID
     Route: 048
     Dates: start: 20181130
  24. NICODERM CQ [Concomitant]
     Active Substance: NICOTINE
     Indication: SMOKING CESSATION THERAPY
     Dosage: 7 MG, QD
     Route: 062
     Dates: start: 20180207
  25. ATORVASTATIN TEVA [Concomitant]
     Active Substance: ATORVASTATIN
     Indication: DYSLIPIDAEMIA
     Dosage: 10 MG, QHS
     Route: 048
     Dates: start: 20171201
  26. BENADRYL [Concomitant]
     Active Substance: DIPHENHYDRAMINE HYDROCHLORIDE
     Indication: URTICARIA
     Dosage: OINT, TID PRN
     Route: 061
     Dates: start: 20180301
  27. BETAMETHASONE DIPROPIONATE W/SALICYLIC ACID [Concomitant]
     Indication: PRURITUS
     Dosage: OINT, BID
     Route: 061
     Dates: start: 201711, end: 20180314
  28. TAZOCIN [Concomitant]
     Active Substance: PIPERACILLIN SODIUM\TAZOBACTAM SODIUM
     Indication: NEUTROPENIA
     Dosage: 4.5 G, Q6H
     Route: 042
     Dates: start: 20181207

REACTIONS (1)
  - Myelodysplastic syndrome [Not Recovered/Not Resolved]

NARRATIVE: CASE EVENT DATE: 20181211
